FAERS Safety Report 6532173-9 (Version None)
Quarter: 2010Q1

REPORT INFORMATION
  Report Type: 
  Country: None (occurrence: None)
  Receive Date: 20100108
  Receipt Date: 20091216
  Transmission Date: 20100710
  Serious: Yes (Other)
  Sender: FDA-Public Use
  Company Number: IT-BAYER-201010364GPV

PATIENT
  Age: 39 Year
  Sex: Female

DRUGS (6)
  1. CEMIRIT [Suspect]
     Indication: DRUG USE FOR UNKNOWN INDICATION
     Route: 048
  2. MOMENT [Suspect]
     Indication: DRUG USE FOR UNKNOWN INDICATION
     Route: 048
  3. ANTIBIOTICS [Suspect]
     Indication: DRUG USE FOR UNKNOWN INDICATION
     Route: 065
  4. STOP PED GEL [Concomitant]
  5. PARANIX [Concomitant]
  6. OLIO LOUSE BUSTER [Concomitant]

REACTIONS (1)
  - ABORTED PREGNANCY [None]
